FAERS Safety Report 13400808 (Version 1)
Quarter: 2017Q2

REPORT INFORMATION
  Report Type: Spontaneous
  Country: US (occurrence: US)
  Receive Date: 20170404
  Receipt Date: 20170404
  Transmission Date: 20170830
  Serious: Yes (Hospitalization)
  Sender: FDA-Public Use
  Company Number: US-MYLANLABS-2017M1005227

PATIENT
  Age: 80 Year

DRUGS (5)
  1. VELCADE [Suspect]
     Active Substance: BORTEZOMIB
     Indication: PLASMA CELL MYELOMA
     Dosage: 1.3 MG/M2, (DAYS 1, 8, 15, 22 ON 35-DAY CYCLE)
     Route: 042
     Dates: start: 20100415, end: 20110119
  2. DECADRON [Suspect]
     Active Substance: DEXAMETHASONE
     Indication: PLASMA CELL MYELOMA
     Dosage: 20 MG,(ON DAY OF VELCADE)
     Route: 042
  3. DECADRON [Suspect]
     Active Substance: DEXAMETHASONE
     Dosage: 20 MG, (DAY AFTER VELCADE)
     Route: 048
     Dates: start: 20100415, end: 20110119
  4. MELPHALAN. [Suspect]
     Active Substance: MELPHALAN
     Indication: PLASMA CELL MYELOMA
     Dosage: 9 MG/M2, QD (X4 DAYS AT START OF EACH FIRST 2 CYCLES)
     Route: 048
     Dates: start: 20101021, end: 20110119
  5. PREDNISONE TABLETS USP [Suspect]
     Active Substance: PREDNISONE
     Indication: PLASMA CELL MYELOMA
     Dosage: 80 MG, QD (X4 DAYS AT START OF EACH FIRST 2 CYCLES)
     Route: 048
     Dates: start: 20101021, end: 20101211

REACTIONS (1)
  - Pyrexia [Recovered/Resolved]

NARRATIVE: CASE EVENT DATE: 20101026
